FAERS Safety Report 5343253-8 (Version None)
Quarter: 2007Q2

REPORT INFORMATION
  Report Type: 
  Country: None (occurrence: None)
  Receive Date: 20070416
  Receipt Date: 20070209
  Transmission Date: 20071010
  Serious: No
  Sender: FDA-Public Use
  Company Number: 2007SP000469

PATIENT
  Age: 58 Year
  Sex: Male
  Weight: 104.3273 kg

DRUGS (3)
  1. LUNESTA [Suspect]
     Indication: PAIN
     Dosage: 3 MG; ORAL
     Route: 048
     Dates: start: 20070101
  2. WARFARIN SODIUM [Concomitant]
  3. TOPRAL [Concomitant]

REACTIONS (2)
  - DYSGEUSIA [None]
  - MIDDLE INSOMNIA [None]
